FAERS Safety Report 4417197-X (Version None)
Quarter: 2004Q3

REPORT INFORMATION
  Report Type: 
  Country: None (occurrence: None)
  Receive Date: 20040806
  Receipt Date: 20020307
  Transmission Date: 20050211
  Serious: Yes (Life-Threatening, Other)
  Sender: FDA-Public Use
  Company Number: US-BRISTOL-MYERS SQUIBB COMPANY-11766896

PATIENT
  Age: 62 Year
  Sex: Female

DRUGS (5)
  1. PRAVASTATIN [Suspect]
     Indication: HYPERLIPIDAEMIA
     Route: 048
     Dates: start: 19980626
  2. CARDENALIN [Suspect]
     Indication: HYPERTENSION
     Route: 048
  3. CILNIDIPINE [Suspect]
     Indication: HYPERTENSION
  4. CEROCRAL [Suspect]
     Indication: HYPERTENSION
     Route: 048
  5. ENALAPRIL MALEATE [Suspect]
     Indication: HYPERTENSION
     Route: 048

REACTIONS (1)
  - BREAST CANCER [None]
